FAERS Safety Report 8414529-2 (Version None)
Quarter: 2012Q2

REPORT INFORMATION
  Report Type: 
  Country: None (occurrence: None)
  Receive Date: 20120605
  Receipt Date: 20120601
  Transmission Date: 20120825
  Serious: Yes (Other)
  Sender: FDA-Public Use
  Company Number: US-PFIZER INC-2012132676

PATIENT
  Sex: Female
  Weight: 77.098 kg

DRUGS (2)
  1. EFFEXOR XR [Suspect]
     Indication: PANIC DISORDER
  2. EFFEXOR XR [Suspect]
     Indication: DEPRESSION
     Dosage: 75 MG, DAILY
     Dates: start: 20060101

REACTIONS (3)
  - BIPOLAR DISORDER [None]
  - WITHDRAWAL SYNDROME [None]
  - FEELING ABNORMAL [None]
